FAERS Safety Report 19120988 (Version 1)
Quarter: 2021Q2

REPORT INFORMATION
  Report Type: Spontaneous
  Country: US (occurrence: US)
  Receive Date: 20210412
  Receipt Date: 20210412
  Transmission Date: 20210717
  Serious: Yes (Other)
  Sender: FDA-Public Use
  Company Number: None

PATIENT
  Age: 33 Year
  Sex: Male
  Weight: 90.7 kg

DRUGS (3)
  1. ENOXAPARIN 40 MG [Concomitant]
     Active Substance: ENOXAPARIN
     Dates: start: 20210221, end: 20210224
  2. VANCOMYCIN IN NORMAL SALINE [Suspect]
     Active Substance: VANCOMYCIN HYDROCHLORIDE
     Indication: CELLULITIS
     Route: 041
     Dates: start: 20210221, end: 20210222
  3. CEFTRIAXONE 1000 MG [Concomitant]
     Dates: start: 20210221, end: 20210223

REACTIONS (5)
  - Infusion site pruritus [None]
  - Drug hypersensitivity [None]
  - Infusion site rash [None]
  - Infusion site pain [None]
  - Infusion site erythema [None]

NARRATIVE: CASE EVENT DATE: 20210222
